FAERS Safety Report 4335136-7 (Version None)
Quarter: 2004Q2

REPORT INFORMATION
  Report Type: 
  Country: None (occurrence: None)
  Receive Date: 20040408
  Receipt Date: 20040330
  Transmission Date: 20050107
  Serious: Yes (Hospitalization, Other)
  Sender: FDA-Public Use
  Company Number: FR-BRISTOL-MYERS SQUIBB COMPANY-12546263

PATIENT
  Age: 59 Year
  Sex: Male

DRUGS (4)
  1. BRISTOPEN INJ [Suspect]
     Indication: ACUTE ENDOCARDITIS
     Route: 042
     Dates: start: 20031129
  2. GENTAMICIN [Suspect]
     Indication: ACUTE ENDOCARDITIS
     Route: 042
     Dates: start: 20031129, end: 20031211
  3. HEPARINE CALCIQUE [Suspect]
     Route: 058
     Dates: start: 20031129, end: 20031228
  4. VITAMIN B1 + B6 [Concomitant]
     Dates: start: 20031129

REACTIONS (3)
  - ANAEMIA [None]
  - LEUKOPENIA [None]
  - RENAL FAILURE [None]
